FAERS Safety Report 24740827 (Version 1)
Quarter: 2024Q4

REPORT INFORMATION
  Report Type: Other
  Country: US (occurrence: US)
  Receive Date: 20241217
  Receipt Date: 20241217
  Transmission Date: 20250114
  Serious: Yes (Death, Hospitalization)
  Sender: BIONPHARMA INC.
  Company Number: US-Bion-014530

PATIENT
  Age: 48 Year
  Sex: Male

DRUGS (8)
  1. DEXAMETHASONE [Suspect]
     Active Substance: DEXAMETHASONE
     Indication: Haemophagocytic lymphohistiocytosis
  2. ANAKINRA [Concomitant]
     Active Substance: ANAKINRA
     Indication: Haemophagocytic lymphohistiocytosis
  3. RITUXIMAB [Concomitant]
     Active Substance: RITUXIMAB
     Indication: Haemophagocytic lymphohistiocytosis
  4. ETOPOSIDE [Concomitant]
     Active Substance: ETOPOSIDE
     Indication: Haemophagocytic lymphohistiocytosis
  5. DEXAMETHASONE [Suspect]
     Active Substance: DEXAMETHASONE
     Indication: Angiocentric lymphoma
  6. ANAKINRA [Concomitant]
     Active Substance: ANAKINRA
     Indication: Angiocentric lymphoma
  7. RITUXIMAB [Concomitant]
     Active Substance: RITUXIMAB
     Indication: Angiocentric lymphoma
  8. ETOPOSIDE [Concomitant]
     Active Substance: ETOPOSIDE
     Indication: Angiocentric lymphoma

REACTIONS (1)
  - Drug ineffective [Fatal]
